FAERS Safety Report 21424865 (Version 2)
Quarter: 2023Q4

REPORT INFORMATION
  Report Type: Report from Study
  Country: US (occurrence: US)
  Receive Date: 20221008
  Receipt Date: 20231101
  Transmission Date: 20240110
  Serious: Yes (Other)
  Sender: FDA-Public Use
  Company Number: US-ABBVIE-4141700

PATIENT
  Sex: Female
  Weight: 45.35 kg

DRUGS (1)
  1. HUMIRA [Suspect]
     Active Substance: ADALIMUMAB
     Indication: Product used for unknown indication
     Dosage: FORM STRENGTH: 40 MILLIGRAM
     Route: 058

REACTIONS (27)
  - Lymphoma [Unknown]
  - Balance disorder [Unknown]
  - Device use error [Not Recovered/Not Resolved]
  - Inflammatory bowel disease [Unknown]
  - Hypoacusis [Unknown]
  - Osteoporosis [Unknown]
  - Angina pectoris [Unknown]
  - Visual impairment [Unknown]
  - Hypertension [Unknown]
  - Crohn^s disease [Unknown]
  - Depression [Unknown]
  - Loss of personal independence in daily activities [Unknown]
  - Colitis ulcerative [Unknown]
  - Mobility decreased [Unknown]
  - Emotional disorder [Unknown]
  - Pain [Unknown]
  - Energy increased [Unknown]
  - Depressed mood [Unknown]
  - Loss of personal independence in daily activities [Unknown]
  - Mental impairment [Unknown]
  - Disturbance in attention [Unknown]
  - Chronic obstructive pulmonary disease [Unknown]
  - Urinary incontinence [Unknown]
  - Fall [Unknown]
  - Gait disturbance [Unknown]
  - Memory impairment [Unknown]
  - Mobility decreased [Unknown]

NARRATIVE: CASE EVENT DATE: 20220101
